FAERS Safety Report 4979490-1 (Version None)
Quarter: 2006Q2

REPORT INFORMATION
  Report Type: 
  Country: None (occurrence: None)
  Receive Date: 20060421
  Receipt Date: 20060418
  Transmission Date: 20061013
  Serious: Yes (Life-Threatening)
  Sender: FDA-Public Use
  Company Number: 2006AC00752

PATIENT
  Age: 62 Year
  Sex: Female
  Weight: 70 kg

DRUGS (5)
  1. PROPOFOL [Suspect]
     Indication: LIGHT ANAESTHESIA
     Route: 042
  2. MIDAZOLAM HCL [Concomitant]
     Indication: ANAESTHETIC PREMEDICATION
     Route: 042
  3. MIDAZOLAM HCL [Concomitant]
     Route: 042
  4. FENTANYL [Concomitant]
     Indication: ANAESTHESIA
     Route: 042
  5. RINGERS LACTATE SOLUTION [Concomitant]
     Route: 042

REACTIONS (5)
  - ACCIDENTAL OVERDOSE [None]
  - APNOEA [None]
  - DEVICE FAILURE [None]
  - INCORRECT DRUG ADMINISTRATION RATE [None]
  - PROCEDURAL COMPLICATION [None]
